FAERS Safety Report 20021773 (Version 3)
Quarter: 2021Q4

REPORT INFORMATION
  Report Type: Spontaneous
  Country: ES (occurrence: ES)
  Receive Date: 20211101
  Receipt Date: 20211114
  Transmission Date: 20220303
  Serious: Yes (Hospitalization)
  Sender: FDA-Public Use
  Company Number: ES-CELLTRION INC.-2021ES007167

PATIENT

DRUGS (18)
  1. TRUXIMA [Suspect]
     Active Substance: RITUXIMAB-ABBS
     Indication: Nodal marginal zone B-cell lymphoma stage IV
     Dosage: 375 MG/M2 (FIRST LINE) FIRST CYCLE
     Route: 041
     Dates: start: 202010
  2. TRUXIMA [Suspect]
     Active Substance: RITUXIMAB-ABBS
     Indication: Marginal zone lymphoma stage IV
     Dosage: 375 MG/M2 (FIRST LINE) FIRST CYCLE
     Route: 041
     Dates: start: 202010
  3. TRUXIMA [Suspect]
     Active Substance: RITUXIMAB-ABBS
     Indication: Lymphoma
     Dosage: 375 MG/M2; SECOND CYCLE
     Route: 041
  4. TRUXIMA [Suspect]
     Active Substance: RITUXIMAB-ABBS
     Dosage: 375 MG/M2; FIRST PART OF THE THIRD CYCLE
     Route: 041
     Dates: start: 202012
  5. TRUXIMA [Suspect]
     Active Substance: RITUXIMAB-ABBS
     Dosage: 375 MG/M2, CYCLIC (3 CYCLES)
     Route: 041
     Dates: start: 202012
  6. TRUXIMA [Suspect]
     Active Substance: RITUXIMAB-ABBS
     Dosage: UNK
     Dates: start: 202012
  7. TRUXIMA [Suspect]
     Active Substance: RITUXIMAB-ABBS
     Dosage: 375 MG/M2, CYCLIC
     Dates: start: 202010
  8. BENDAMUSTINE [Concomitant]
     Active Substance: BENDAMUSTINE
     Indication: Nodal marginal zone B-cell lymphoma stage IV
     Dosage: 90 MG/M2, CYCLIC
     Route: 042
     Dates: start: 2020
  9. BENDAMUSTINE [Concomitant]
     Active Substance: BENDAMUSTINE
     Indication: Marginal zone lymphoma stage IV
  10. BENDAMUSTINE [Concomitant]
     Active Substance: BENDAMUSTINE
     Indication: Lymphoma
  11. DEXAMETHASONE [Concomitant]
     Active Substance: DEXAMETHASONE
     Indication: Nodal marginal zone B-cell lymphoma stage IV
     Dosage: 4 MG
     Route: 042
     Dates: start: 2020
  12. DEXAMETHASONE [Concomitant]
     Active Substance: DEXAMETHASONE
     Indication: Marginal zone lymphoma stage IV
  13. DEXCHLORPHENIRAMINE [Concomitant]
     Active Substance: DEXCHLORPHENIRAMINE
     Indication: Nodal marginal zone B-cell lymphoma stage IV
     Dosage: 5 MG
     Route: 042
     Dates: start: 2020
  14. DEXCHLORPHENIRAMINE [Concomitant]
     Active Substance: DEXCHLORPHENIRAMINE
     Indication: Marginal zone lymphoma stage IV
  15. ACETAMINOPHEN [Concomitant]
     Active Substance: ACETAMINOPHEN
     Indication: Nodal marginal zone B-cell lymphoma stage IV
     Dosage: 1 G
     Route: 042
     Dates: start: 2020
  16. ACETAMINOPHEN [Concomitant]
     Active Substance: ACETAMINOPHEN
     Indication: Marginal zone lymphoma stage IV
  17. ONDANSETRON [Concomitant]
     Active Substance: ONDANSETRON
     Indication: Nodal marginal zone B-cell lymphoma stage IV
     Dosage: 8 MG
     Route: 042
     Dates: start: 2020
  18. ONDANSETRON [Concomitant]
     Active Substance: ONDANSETRON
     Indication: Marginal zone lymphoma stage IV

REACTIONS (5)
  - Serum sickness [Recovered/Resolved]
  - Hypotension [Recovered/Resolved]
  - Fatigue [Recovered/Resolved]
  - Back pain [Recovered/Resolved]
  - Off label use [Unknown]

NARRATIVE: CASE EVENT DATE: 20200101
